FAERS Safety Report 9424175 (Version 1)
Quarter: 2013Q3

REPORT INFORMATION
  Report Type: Spontaneous
  Country: US (occurrence: US)
  Receive Date: 20130729
  Receipt Date: 20130729
  Transmission Date: 20140515
  Serious: Yes (Other)
  Sender: FDA-Public Use
  Company Number: US-ROCHE-1249007

PATIENT
  Sex: Female
  Weight: 56.66 kg

DRUGS (15)
  1. XOLAIR [Suspect]
     Indication: ASTHMA
     Route: 058
     Dates: start: 20120210
  2. XOLAIR [Suspect]
     Route: 058
     Dates: start: 20121002
  3. XOLAIR [Suspect]
     Route: 058
     Dates: start: 20130626
  4. INDOMETHACIN [Concomitant]
     Dosage: EXTENDED RELEASE
     Route: 065
  5. FLONASE [Concomitant]
     Dosage: 50 MCG/ACT SUSPENSION 2 SPRAYS
     Route: 065
  6. CLARITIN [Concomitant]
     Route: 065
  7. PROZAC [Concomitant]
     Route: 065
  8. BACTRIM [Concomitant]
     Route: 065
  9. RITUXAN [Concomitant]
     Dosage: DOSE: 10 MG/ML
     Route: 042
  10. PRISTIQ [Concomitant]
     Dosage: EXTENDED RELEASE 24 HR
     Route: 065
  11. SINGULAIR [Concomitant]
     Route: 065
  12. DULERA [Concomitant]
     Dosage: 200-5 MCG/ACT; 2 PUFFS  EVERY 12 H
     Route: 065
  13. VENTOLIN [Concomitant]
     Dosage: HFA 108 (90BASE) MCG/ACT AEROSOL SOLUTION 2 PUFFS AS NEEDED EVERY 4 H, 15 MINS BEFORE EXCERCISE
     Route: 065
  14. EPIPEN [Concomitant]
     Dosage: 2 PAK 0.3 MG/0.3 ML DEVICE AS DIRECTED
     Route: 065
  15. PREDNISONE [Concomitant]
     Dosage: 1 TABLET WITH FOOD OR MILK AS DIRECTED TO HAVE ON HAND
     Route: 065

REACTIONS (1)
  - Abortion spontaneous [Unknown]
